FAERS Safety Report 5109011-4 (Version None)
Quarter: 2006Q3

REPORT INFORMATION
  Report Type: 
  Country: None (occurrence: None)
  Receive Date: 20060918
  Receipt Date: 20060831
  Transmission Date: 20061208
  Serious: Yes (Hospitalization, Other)
  Sender: FDA-Public Use
  Company Number: US200603000879

PATIENT
  Age: 84 Year
  Sex: Female
  Weight: 39.9 kg

DRUGS (7)
  1. FORTEO [Suspect]
     Indication: OSTEOPOROSIS
     Dates: start: 20040501, end: 20060501
  2. FORTEO PEN (FORTEO PEN) [Concomitant]
  3. MACRODANTIN [Concomitant]
  4. CALCIUM (CALCIUM) [Concomitant]
  5. IROFOL C (ASCORBIC ACID, FERROUS SULFATE, FOLIC ACID) [Concomitant]
  6. LASIX [Concomitant]
  7. IMODIUM A-D [Concomitant]

REACTIONS (2)
  - MUSCULOSKELETAL STIFFNESS [None]
  - TRANSIENT ISCHAEMIC ATTACK [None]
